FAERS Safety Report 25448781 (Version 4)
Quarter: 2025Q4

REPORT INFORMATION
  Report Type: Spontaneous
  Country: EU (occurrence: EU)
  Receive Date: 20250618
  Receipt Date: 20251218
  Transmission Date: 20260117
  Serious: Yes (Hospitalization)
  Sender: Haleon PLC
  Company Number: EU-SANDOZ-SDZ2025DE040555

PATIENT
  Sex: Male

DRUGS (15)
  1. DICLOFENAC [Suspect]
     Active Substance: DICLOFENAC
     Indication: Axial spondyloarthritis
     Dosage: 75 MG (7 DAYS PER WEEK, START DATE: 04-JAN-2023)?ROUTE OF ADMINISTRATION: UNKNOWN
  2. ETORICOXIB [Suspect]
     Active Substance: ETORICOXIB
     Indication: Axial spondyloarthritis
     Dosage: 90 MG (7 DAYS PER WEEK)?ROUTE OF ADMINISTRATION: UNKNOWN?FIRST ADMIN DATE: 28-APR-2017
     Dates: start: 20170428, end: 20221207
  3. ETORICOXIB [Suspect]
     Active Substance: ETORICOXIB
     Dosage: 90 MG?ROUTE OF ADMINISTRATION: UNKNOWN?FIRST ADMIN DATE: 28-APR-2017
     Dates: start: 20170428, end: 20181120
  4. COSENTYX [Suspect]
     Active Substance: SECUKINUMAB
     Indication: Axial spondyloarthritis
     Dosage: 300 MG, Q4W, 07-DEC-2020?FIRST ADMIN DATE: 07-MAR-2022?ROUTE OF ADMINISTRATION: UNKNOWN
  5. COSENTYX [Suspect]
     Active Substance: SECUKINUMAB
     Dosage: 150 MG?150 MG (START DATE: 07-DEC-2020 00:00)?ROUTE OF ADMINISTRATION: UNKNOWN
     Dates: start: 20180622, end: 20201207
  6. COSENTYX [Suspect]
     Active Substance: SECUKINUMAB
     Dosage: 150 MG, Q4W?ROUTE OF ADMINISTRATION: UNKNOWN
     Dates: start: 20180622, end: 20201025
  7. COSENTYX [Suspect]
     Active Substance: SECUKINUMAB
     Dosage: 90 MG, Q4W (300 MG, Q4W, START DATE: 07-MAR-2022 00:00)?FIRST ADMIN DATE: 07-DEC-2020?ROUTE OF ADMINISTRATION: UNKNOWN
  8. BISOPROLOL [Concomitant]
     Active Substance: BISOPROLOL
     Indication: Product used for unknown indication
     Dosage: 5 MG?ROUTE OF ADMINISTRATION: UNKNOWN
  9. VALSARTAN [Concomitant]
     Active Substance: VALSARTAN
     Indication: Product used for unknown indication
     Dosage: 80 MG?ROUTE OF ADMINISTRATION: UNKNOWN
  10. AMLODIPINE [Concomitant]
     Active Substance: AMLODIPINE BESYLATE
     Indication: Product used for unknown indication
     Dosage: 5 MG?ROUTE OF ADMINISTRATION: UNKNOWN
  11. PANTOZOL [Concomitant]
     Active Substance: PANTOPRAZOLE SODIUM
     Indication: Product used for unknown indication
     Dosage: 40 MG?ROUTE OF ADMINISTRATION: UNKNOWN
  12. SIMVASTATIN [Concomitant]
     Active Substance: SIMVASTATIN
     Indication: Product used for unknown indication
     Dosage: 40 MG?ROUTE OF ADMINISTRATION: UNKNOWN
  13. TILIDINE [Concomitant]
     Active Substance: TILIDINE
     Indication: Product used for unknown indication
     Dosage: UNK (100MG/8MG 600MG 8MG 600)?ROUTE OF ADMINISTRATION: UNKNOWN
  14. IBUPROFEN [Concomitant]
     Active Substance: IBUPROFEN
     Indication: Product used for unknown indication
     Dosage: 600 MG (600 MG, B BED)?ROUTE OF ADMINISTRATION: UNKNOWN
  15. XARELTO [Concomitant]
     Active Substance: RIVAROXABAN
     Indication: Product used for unknown indication
     Dosage: 20 MG?ROUTE OF ADMINISTRATION: UNKNOWN

REACTIONS (4)
  - Device related infection [Unknown]
  - Osteoarthritis [Unknown]
  - Knee arthroplasty [Unknown]
  - Anaemia postoperative [Unknown]

NARRATIVE: CASE EVENT DATE: 20201125
